FAERS Safety Report 21038473 (Version 2)
Quarter: 2022Q3

REPORT INFORMATION
  Report Type: Spontaneous
  Country: US (occurrence: US)
  Receive Date: 20220704
  Receipt Date: 20220719
  Transmission Date: 20221027
  Serious: Yes (Hospitalization)
  Sender: FDA-Public Use
  Company Number: US-GBT-013691

PATIENT
  Age: 36 Year
  Sex: Male

DRUGS (1)
  1. OXBRYTA [Suspect]
     Active Substance: VOXELOTOR
     Indication: Sickle cell disease
     Dosage: TIME INTERVAL: 0.33333333 DAYS
     Route: 048

REACTIONS (5)
  - Sickle cell anaemia with crisis [Not Recovered/Not Resolved]
  - Metabolic encephalopathy [Unknown]
  - Pain [Not Recovered/Not Resolved]
  - Mental status changes [Unknown]
  - Hospitalisation [Unknown]

NARRATIVE: CASE EVENT DATE: 20220608
